FAERS Safety Report 15930759 (Version 2)
Quarter: 2019Q1

REPORT INFORMATION
  Report Type: Spontaneous
  Country: SE (occurrence: SE)
  Receive Date: 20190207
  Receipt Date: 20190301
  Transmission Date: 20190417
  Serious: Yes (Life-Threatening, Hospitalization, Disabling, Other)
  Sender: FDA-Public Use
  Company Number: SE-ACCORD-105836

PATIENT
  Age: 75 Year
  Sex: Male

DRUGS (11)
  1. ELIQUIS [Concomitant]
     Active Substance: APIXABAN
  2. FUCIDIN (FUSIDIC ACID) [Interacting]
     Active Substance: FUSIDIC ACID
     Indication: ENDOCARDITIS
     Dosage: 2X3
     Route: 048
     Dates: start: 20180416, end: 20180506
  3. METOPROLOL. [Concomitant]
     Active Substance: METOPROLOL
  4. CANDESARTAN. [Concomitant]
     Active Substance: CANDESARTAN
  5. EKVACILLIN [Concomitant]
     Active Substance: CLOXACILLIN SODIUM
  6. OMEPRAZOLE. [Concomitant]
     Active Substance: OMEPRAZOLE
  7. ALLOPURINOL. [Concomitant]
     Active Substance: ALLOPURINOL
  8. ATORVASTATIN/ATORVASTATIN CALCIUM [Suspect]
     Active Substance: ATORVASTATIN CALCIUM
     Indication: PRODUCT USED FOR UNKNOWN INDICATION
     Route: 048
     Dates: start: 20171130, end: 20180506
  9. TROMBYL [Concomitant]
     Active Substance: ASPIRIN
  10. PARACETAMOL [Concomitant]
     Active Substance: ACETAMINOPHEN
  11. INSPRA [Concomitant]
     Active Substance: EPLERENONE

REACTIONS (2)
  - Drug interaction [Unknown]
  - Rhabdomyolysis [Not Recovered/Not Resolved]

NARRATIVE: CASE EVENT DATE: 20180506
